FAERS Safety Report 8182125-0 (Version None)
Quarter: 2012Q1

REPORT INFORMATION
  Report Type: 
  Country: None (occurrence: None)
  Receive Date: 20120302
  Receipt Date: 20110310
  Transmission Date: 20120608
  Serious: Yes (Death)
  Sender: FDA-Public Use
  Company Number: PHEH2011US013031

PATIENT
  Sex: Male

DRUGS (1)
  1. GLEEVEC [Suspect]
     Dosage: 400 MG, DAILY(ONE TABLET ON DAYS 12-14 OF EACH CYCLE)
     Route: 048
     Dates: start: 20110104, end: 20110217

REACTIONS (1)
  - DEATH [None]
